FAERS Safety Report 18189921 (Version 1)
Quarter: 2020Q3

REPORT INFORMATION
  Report Type: Spontaneous
  Country: FR (occurrence: FR)
  Receive Date: 20200825
  Receipt Date: 20200825
  Transmission Date: 20201103
  Serious: Yes (Life-Threatening)
  Sender: FDA-Public Use
  Company Number: FR-ACCORD-196674

PATIENT
  Age: 76 Year
  Sex: Female
  Weight: 54 kg

DRUGS (14)
  1. HYDREA [Suspect]
     Active Substance: HYDROXYUREA
     Indication: POLYCYTHAEMIA VERA
     Dosage: 500 MG
     Route: 048
     Dates: start: 200605, end: 201307
  2. NEBIVOLOL. [Suspect]
     Active Substance: NEBIVOLOL
     Indication: HYPERTENSION
     Route: 048
  3. SERESTA [Suspect]
     Active Substance: OXAZEPAM
     Indication: ANXIETY
     Route: 048
  4. VERCYTE [Suspect]
     Active Substance: PIPOBROMAN
     Indication: POLYCYTHAEMIA VERA
     Dosage: 25 MG, TABLET
     Route: 048
     Dates: start: 201307, end: 201605
  5. PREVISCAN [FLUINDIONE] [Suspect]
     Active Substance: FLUINDIONE
     Indication: THROMBOSIS PROPHYLAXIS
     Dosage: 20 MG, SCORED TABLET
     Route: 048
  6. PRAVASTATIN. [Suspect]
     Active Substance: PRAVASTATIN
     Indication: DYSLIPIDAEMIA
     Route: 048
  7. EUPRESSYL [Suspect]
     Active Substance: URAPIDIL
     Indication: HYPERTENSION
     Dosage: 60 MG
     Route: 048
  8. RETACRIT [Suspect]
     Active Substance: EPOETIN ALFA-EPBX
     Indication: ANAEMIA
     Route: 058
  9. ANAGRELIDE. [Suspect]
     Active Substance: ANAGRELIDE HYDROCHLORIDE
     Indication: POLYCYTHAEMIA VERA
     Dosage: 0.5 MG CAPSULES
     Route: 048
     Dates: start: 201307, end: 201605
  10. MONOPROST [Suspect]
     Active Substance: LATANOPROST
     Indication: INTRAOCULAR PRESSURE TEST
     Dosage: 50 MICROGRAMS / ML, EYE DROPS, SOLUTION IN SINGLE?DOSE CONTAINER
     Route: 047
  11. LERCAN [Suspect]
     Active Substance: LERCANIDIPINE
     Indication: HYPERTENSION
     Dosage: 10 MG, SCORED FILM?COATED TABLET
     Route: 048
  12. JAKAVI [Suspect]
     Active Substance: RUXOLITINIB
     Indication: MYELOFIBROSIS
     Dosage: 20 MG, TABLET
     Route: 048
     Dates: start: 201607
  13. HYPERIUM [Suspect]
     Active Substance: RILMENIDINE PHOSPHATE
     Indication: HYPERTENSION
     Route: 048
  14. LEVOTHYROX [Suspect]
     Active Substance: LEVOTHYROXINE
     Indication: THYROID MASS
     Dosage: 75 MICROGRAMS, SCORED TABLET
     Route: 048

REACTIONS (1)
  - Adenocarcinoma metastatic [Not Recovered/Not Resolved]

NARRATIVE: CASE EVENT DATE: 202004
